FAERS Safety Report 24584710 (Version 1)
Quarter: 2024Q4

REPORT INFORMATION
  Report Type: Spontaneous
  Country: US (occurrence: None)
  Receive Date: 20241106
  Receipt Date: 20241106
  Transmission Date: 20250115
  Serious: Yes (Other)
  Sender: Public
  Company Number: None

PATIENT
  Age: 41 Year
  Sex: Female

DRUGS (1)
  1. KESIMPTA [Suspect]
     Active Substance: OFATUMUMAB
     Indication: Product used for unknown indication
     Dosage: FREQUENCY : MONTHLY;?

REACTIONS (5)
  - Spinal column injury [None]
  - Condition aggravated [None]
  - Back pain [None]
  - Pain in extremity [None]
  - Hypoaesthesia [None]
